FAERS Safety Report 18886020 (Version 7)
Quarter: 2022Q2

REPORT INFORMATION
  Report Type: Spontaneous
  Country: US (occurrence: US)
  Receive Date: 20210212
  Receipt Date: 20220517
  Transmission Date: 20220720
  Serious: Yes (Hospitalization, Other)
  Sender: FDA-Public Use
  Company Number: US-SA-SAC20210208001295

PATIENT
  Age: 59 Year
  Sex: Male

DRUGS (1)
  1. DUPIXENT [Suspect]
     Active Substance: DUPILUMAB
     Indication: Asthma
     Dosage: 300 MG, QOW
     Route: 058
     Dates: start: 202012

REACTIONS (8)
  - Lung neoplasm malignant [Unknown]
  - Surgery [Unknown]
  - Vision blurred [Unknown]
  - Poor quality sleep [Unknown]
  - Weight increased [Unknown]
  - Dizziness [Unknown]
  - Product use issue [Unknown]
  - Viral infection [Unknown]

NARRATIVE: CASE EVENT DATE: 20201201
